FAERS Safety Report 8572236-X (Version None)
Quarter: 2012Q3

REPORT INFORMATION
  Report Type: 
  Country: None (occurrence: None)
  Receive Date: 20120806
  Receipt Date: 20120727
  Transmission Date: 20120928
  Serious: Yes (Other)
  Sender: FDA-Public Use
  Company Number: JP-ASTELLAS-2012JP007075

PATIENT
  Age: 37 Year
  Sex: Female

DRUGS (15)
  1. PROGRAF [Suspect]
     Indication: PROPHYLAXIS AGAINST GRAFT VERSUS HOST DISEASE
     Dosage: UNK
     Route: 065
  2. NEUPOGEN [Concomitant]
     Dosage: UNK
     Route: 065
  3. CYTARABINE [Concomitant]
     Indication: ACUTE MYELOID LEUKAEMIA
     Dosage: UNK
     Route: 065
  4. CYTARABINE [Concomitant]
     Dosage: UNK
     Route: 065
  5. FLUDARABINE PHOSPHATE [Concomitant]
     Indication: ACUTE MYELOID LEUKAEMIA
     Dosage: UNK
     Route: 065
  6. FLUDARABINE PHOSPHATE [Concomitant]
     Route: 065
  7. MITOXANTRONE [Concomitant]
     Indication: ACUTE MYELOID LEUKAEMIA
     Dosage: UNK
     Route: 065
  8. MITOXANTRONE [Concomitant]
     Dosage: UNK
     Route: 065
     Dates: start: 20111101
  9. IDARUBICIN HCL [Concomitant]
     Indication: ACUTE MYELOID LEUKAEMIA
     Dosage: UNK
     Route: 065
  10. CYTARABINE [Concomitant]
     Dosage: UNK
     Route: 065
     Dates: start: 20111101
  11. FLUDARABINE PHOSPHATE [Concomitant]
     Indication: CORD BLOOD TRANSPLANT THERAPY
     Dosage: UNK
     Route: 065
     Dates: start: 20110801
  12. MITOXANTRONE [Concomitant]
     Dosage: UNK
     Route: 065
     Dates: start: 20110801
  13. CYTARABINE [Concomitant]
     Dosage: UNK
     Route: 065
     Dates: start: 20110801
  14. MELPHALAN HYDROCHLORIDE [Concomitant]
     Indication: CORD BLOOD TRANSPLANT THERAPY
     Dosage: UNK
     Route: 065
  15. FOSCARNET [Concomitant]
     Indication: ENCEPHALITIS HERPES
     Dosage: 60 MG/KG, TID
     Route: 065

REACTIONS (2)
  - ACUTE GRAFT VERSUS HOST DISEASE [None]
  - DRUG INEFFECTIVE [None]
